FAERS Safety Report 10795491 (Version 1)
Quarter: 2015Q1

REPORT INFORMATION
  Report Type: Spontaneous
  Country: US (occurrence: US)
  Receive Date: 20150215
  Receipt Date: 20150215
  Transmission Date: 20150721
  Serious: Yes (Death, Life-Threatening, Hospitalization, Other)
  Sender: FDA-Public Use
  Company Number: US-ACTAVIS-2015-01852

PATIENT
  Age: 13 Month
  Sex: Female

DRUGS (1)
  1. LIDOCAINE HYDROCHLORIDE (WATSON LABORATORIES) [Suspect]
     Active Substance: LIDOCAINE HYDROCHLORIDE
     Indication: TEETHING
     Dosage: UNK
     Route: 048

REACTIONS (15)
  - Abnormal faeces [Unknown]
  - Electrocardiogram QRS complex shortened [Not Recovered/Not Resolved]
  - Seizure [Recovered/Resolved]
  - Cyanosis [Unknown]
  - Foaming at mouth [Unknown]
  - Accidental overdose [Fatal]
  - Bradycardia [Not Recovered/Not Resolved]
  - Coma [Not Recovered/Not Resolved]
  - Agonal rhythm [Fatal]
  - Tachycardia [Not Recovered/Not Resolved]
  - Apnoea [Unknown]
  - Abdominal distension [Unknown]
  - Blood glucose increased [Unknown]
  - Incorrect route of drug administration [Fatal]
  - Intentional product misuse [Fatal]
